FAERS Safety Report 13775280 (Version 1)
Quarter: 2017Q3

REPORT INFORMATION
  Report Type: Spontaneous
  Country: US (occurrence: US)
  Receive Date: 20170720
  Receipt Date: 20170720
  Transmission Date: 20171127
  Serious: No
  Sender: FDA-Public Use
  Company Number: US-MYLANLABS-2016M1050547

PATIENT
  Sex: Female
  Weight: 65.76 kg

DRUGS (1)
  1. PREDNISONE TABLETS USP [Suspect]
     Active Substance: PREDNISONE
     Indication: PERICARDITIS
     Dosage: 5 MG, TAPERED
     Route: 048
     Dates: start: 20160714, end: 20161006

REACTIONS (1)
  - Alopecia [Not Recovered/Not Resolved]

NARRATIVE: CASE EVENT DATE: 2016
